FAERS Safety Report 9782168 (Version 1)
Quarter: 2013Q4

REPORT INFORMATION
  Report Type: Report from Study
  Country: US (occurrence: US)
  Receive Date: 20131226
  Receipt Date: 20131226
  Transmission Date: 20140711
  Serious: Yes (Hospitalization)
  Sender: FDA-Public Use
  Company Number: US-ROCHE-1322508

PATIENT
  Sex: Male

DRUGS (1)
  1. XELODA [Suspect]
     Indication: COLORECTAL CANCER METASTATIC
     Dosage: EVERY AM AND EVERY PM
     Route: 048
     Dates: start: 20131004, end: 20131203

REACTIONS (1)
  - Small intestinal obstruction [Recovering/Resolving]
